FAERS Safety Report 9691128 (Version 1)
Quarter: 2013Q4

REPORT INFORMATION
  Report Type: Spontaneous
  Country: US (occurrence: US)
  Receive Date: 20131115
  Receipt Date: 20131115
  Transmission Date: 20140711
  Serious: Yes (Other)
  Sender: FDA-Public Use
  Company Number: US-AMGEN-USASP2013080077

PATIENT
  Sex: 0

DRUGS (1)
  1. ENBREL [Suspect]
     Indication: PRODUCT USED FOR UNKNOWN INDICATION
     Dosage: UNK
     Route: 065

REACTIONS (7)
  - Surgery [Unknown]
  - Disease progression [Unknown]
  - Condition aggravated [Unknown]
  - Drug ineffective [Unknown]
  - Pain [Unknown]
  - Musculoskeletal stiffness [Unknown]
  - Local swelling [Unknown]
